FAERS Safety Report 5415404-8 (Version None)
Quarter: 2007Q3

REPORT INFORMATION
  Report Type: 
  Country: None (occurrence: None)
  Receive Date: 20070813
  Receipt Date: 20070813
  Transmission Date: 20080115
  Serious: Yes (Hospitalization)
  Sender: FDA-Public Use
  Company Number: None

PATIENT
  Age: 54 Year
  Sex: Male

DRUGS (2)
  1. WARFARIN SODIUM [Suspect]
     Indication: DEEP VEIN THROMBOSIS
     Dosage: EVERY DAY PO
     Route: 048
     Dates: start: 20070608
  2. LEVOFLOXACIN [Suspect]
     Dosage: 500MG EVERY DAY PO
     Route: 048
     Dates: start: 20070804

REACTIONS (1)
  - INTERNATIONAL NORMALISED RATIO ABNORMAL [None]
